FAERS Safety Report 9257045 (Version 1)
Quarter: 2013Q1

REPORT INFORMATION
  Report Type: Spontaneous
  Country: US (occurrence: None)
  Receive Date: 20121211
  Receipt Date: 20121211
  Transmission Date: 20140127
  Serious: Yes (Other)
  Sender: FDA-Public Use
  Company Number: US-SEPTODONT-201200805

PATIENT
  Sex: Female

DRUGS (1)
  1. MEPIVACAINE HYDROCHLORIDE [Suspect]
     Indication: LOCAL ANAESTHESIA
     Dosage: 2 CARTRIDGES DENTAL
     Route: 004
     Dates: start: 201209, end: 201209

REACTIONS (2)
  - Angioedema [None]
  - Post procedural discomfort [None]
